FAERS Safety Report 25336653 (Version 1)
Quarter: 2025Q2

REPORT INFORMATION
  Report Type: Report from Study
  Country: US (occurrence: US)
  Receive Date: 20250520
  Receipt Date: 20250520
  Transmission Date: 20250716
  Serious: Yes (Death)
  Sender: LEO PHARM
  Company Number: US-LEO Pharma-379401

PATIENT
  Age: 92 Year
  Sex: Female

DRUGS (1)
  1. ADBRY [Suspect]
     Active Substance: TRALOKINUMAB-LDRM
     Indication: Dermatitis atopic
     Dates: start: 202410, end: 20250327

REACTIONS (1)
  - Death [Fatal]

NARRATIVE: CASE EVENT DATE: 20250418
